FAERS Safety Report 22350812 (Version 1)
Quarter: 2023Q2

REPORT INFORMATION
  Report Type: Report from Study
  Country: TW (occurrence: TW)
  Receive Date: 20230522
  Receipt Date: 20230522
  Transmission Date: 20230721
  Serious: Yes (Hospitalization, Other)
  Sender: FDA-Public Use
  Company Number: TW-BAXTER-2023BAX021862

PATIENT
  Age: 50 Year
  Sex: Male

DRUGS (3)
  1. CYCLOPHOSPHAMIDE [Suspect]
     Active Substance: CYCLOPHOSPHAMIDE
     Indication: High-grade B-cell lymphoma
     Dosage: 1425 MG, ONCE IN 3 WEEKS, FORMULATION: INJECTION, SOLUTION
     Route: 041
     Dates: start: 20230131, end: 20230131
  2. DOXORUBICIN [Suspect]
     Active Substance: DOXORUBICIN
     Indication: High-grade B-cell lymphoma
     Dosage: 95 MG, ONCE IN 3 WEEKS
     Route: 041
     Dates: start: 20230131, end: 20230131
  3. INVESTIGATIONAL PRODUCT [Suspect]
     Active Substance: INVESTIGATIONAL PRODUCT
     Indication: High-grade B-cell lymphoma
     Dosage: 0.4 MG, ONCE DAILY
     Route: 048
     Dates: start: 20230131, end: 20230206

REACTIONS (3)
  - Diplopia [Not Recovered/Not Resolved]
  - Febrile neutropenia [Not Recovered/Not Resolved]
  - Vomiting [Not Recovered/Not Resolved]

NARRATIVE: CASE EVENT DATE: 20230503
